FAERS Safety Report 7904553-8 (Version None)
Quarter: 2011Q4

REPORT INFORMATION
  Report Type: 
  Country: None (occurrence: None)
  Receive Date: 20111109
  Receipt Date: 20111027
  Transmission Date: 20120403
  Serious: Yes (Hospitalization, Other)
  Sender: FDA-Public Use
  Company Number: US-ACTELION-A-NJ2011-52573

PATIENT

DRUGS (2)
  1. VENTAVIS [Suspect]
     Indication: PULMONARY ARTERIAL HYPERTENSION
     Dosage: UNK
     Route: 055
     Dates: start: 20110808
  2. LASIX [Concomitant]

REACTIONS (10)
  - NAUSEA [None]
  - HEADACHE [None]
  - FLUID RETENTION [None]
  - COUGH [None]
  - DIZZINESS [None]
  - BLOOD PRESSURE DECREASED [None]
  - CORONARY ARTERIAL STENT INSERTION [None]
  - CHEST DISCOMFORT [None]
  - CARDIAC FAILURE CONGESTIVE [None]
  - BLOOD GLUCOSE DECREASED [None]
